FAERS Safety Report 25850964 (Version 1)
Quarter: 2025Q3

REPORT INFORMATION
  Report Type: Report from Study
  Country: CA (occurrence: CA)
  Receive Date: 20250926
  Receipt Date: 20250926
  Transmission Date: 20251021
  Serious: Yes (Other)
  Sender: CELLTRION
  Company Number: CA-CELLTRION INC.-2025CA034179

PATIENT

DRUGS (32)
  1. RITUXIMAB [Suspect]
     Active Substance: RITUXIMAB
     Indication: Granulomatosis with polyangiitis
     Route: 042
  2. RITUXIMAB [Suspect]
     Active Substance: RITUXIMAB
     Route: 042
  3. RITUXIMAB [Suspect]
     Active Substance: RITUXIMAB
     Route: 042
  4. RITUXIMAB [Suspect]
     Active Substance: RITUXIMAB
     Route: 042
  5. RITUXIMAB [Suspect]
     Active Substance: RITUXIMAB
     Dosage: 665 MILLIGRAM 1 EVERY 1 WEEK
     Route: 042
  6. ARAVA [Concomitant]
     Active Substance: LEFLUNOMIDE
  7. BENADRYL [Concomitant]
     Active Substance: DIPHENHYDRAMINE HYDROCHLORIDE
     Route: 048
  8. CALCIUM [Concomitant]
     Active Substance: CALCIUM
  9. CANAGLIFLOZIN [Concomitant]
     Active Substance: CANAGLIFLOZIN
     Indication: Diabetes mellitus
  10. COLLAGEN [Concomitant]
     Active Substance: COLLAGEN
  11. COVID-19 VACCINE [Concomitant]
  12. COVID-19 VACCINE [Concomitant]
  13. ESTRADIOL HEMIHYDRATE [Concomitant]
     Active Substance: ESTRADIOL HEMIHYDRATE
  14. GLUCOSAMINE [Concomitant]
     Active Substance: GLUCOSAMINE
  15. GLUMETZA [Concomitant]
     Active Substance: METFORMIN HYDROCHLORIDE
  16. JANUVIA [Concomitant]
     Active Substance: SITAGLIPTIN PHOSPHATE
  17. METHYLPREDNISOLONE [Concomitant]
     Active Substance: METHYLPREDNISOLONE
     Route: 042
  18. NOVORAPID [Concomitant]
     Active Substance: INSULIN ASPART
  19. PANTOPRAZOLE SODIUM [Concomitant]
     Active Substance: PANTOPRAZOLE SODIUM
  20. RAMIPRIL [Concomitant]
     Active Substance: RAMIPRIL
  21. RISEDRONATE SODIUM [Concomitant]
     Active Substance: RISEDRONATE SODIUM
  22. ROSUVASTATIN [Concomitant]
     Active Substance: ROSUVASTATIN
  23. ROSUVASTATIN CALCIUM [Concomitant]
     Active Substance: ROSUVASTATIN CALCIUM
  24. TRESIBA [Concomitant]
     Active Substance: INSULIN DEGLUDEC
  25. TYLENOL [Concomitant]
     Active Substance: ACETAMINOPHEN
     Route: 048
  26. TYLENOL ARTHRITIS PAIN [Concomitant]
     Active Substance: ACETAMINOPHEN
  27. VALACYCLOVIR HYDROCHLORIDE [Concomitant]
     Active Substance: VALACYCLOVIR HYDROCHLORIDE
  28. VITAMIN C [Concomitant]
     Active Substance: ASCORBIC ACID
  29. VITAMIN D3 [Concomitant]
     Active Substance: CHOLECALCIFEROL
  30. VITAMIN E [Concomitant]
     Active Substance: .ALPHA.-TOCOPHEROL
  31. DICLOFENAC [Concomitant]
     Active Substance: DICLOFENAC
     Route: 061
  32. ZOVIRAX [Concomitant]
     Active Substance: ACYCLOVIR

REACTIONS (6)
  - Platelet count decreased [Unknown]
  - Weight decreased [Unknown]
  - Immune thrombocytopenia [Unknown]
  - Underdose [Unknown]
  - Overdose [Unknown]
  - Intentional product use issue [Unknown]
